FAERS Safety Report 9183640 (Version 1)
Quarter: 2013Q1

REPORT INFORMATION
  Report Type: Spontaneous
  Country: US (occurrence: US)
  Receive Date: 20130322
  Receipt Date: 20130322
  Transmission Date: 20140127
  Serious: Yes (Other)
  Sender: FDA-Public Use
  Company Number: US-BRISTOL-MYERS SQUIBB COMPANY-16572240

PATIENT
  Age: 59 Year
  Sex: Female

DRUGS (2)
  1. ERBITUX [Suspect]
     Indication: COLON CANCER
     Dosage: 2ND DOSE:7MAY12,?3RD DOSE:14MAY12
     Route: 042
     Dates: start: 20120423
  2. BENADRYL [Concomitant]
     Indication: PREMEDICATION

REACTIONS (3)
  - Meningitis aseptic [Recovered/Resolved]
  - Dyspnoea [Recovering/Resolving]
  - Dysphagia [Recovering/Resolving]
